FAERS Safety Report 24877475 (Version 1)
Quarter: 2025Q1

REPORT INFORMATION
  Report Type: Spontaneous
  Country: US (occurrence: US)
  Receive Date: 20250123
  Receipt Date: 20250123
  Transmission Date: 20250408
  Serious: No
  Sender: JOHNSON AND JOHNSON
  Company Number: US-JNJFOC-20241219130

PATIENT
  Age: 29 Year
  Sex: Female

DRUGS (3)
  1. TREMFYA [Suspect]
     Active Substance: GUSELKUMAB
     Indication: Psoriasis
     Route: 058
     Dates: start: 20240906, end: 20240906
  2. TREMFYA [Suspect]
     Active Substance: GUSELKUMAB
  3. TREMFYA [Suspect]
     Active Substance: GUSELKUMAB

REACTIONS (6)
  - Injection site pain [Unknown]
  - Rash [Unknown]
  - Pruritus [Unknown]
  - Feeling hot [Unknown]
  - Eczema [Unknown]
  - Drug eruption [Unknown]

NARRATIVE: CASE EVENT DATE: 20240906
